FAERS Safety Report 6177310-3 (Version None)
Quarter: 2009Q2

REPORT INFORMATION
  Report Type: 
  Country: None (occurrence: None)
  Receive Date: 20090430
  Receipt Date: 20090430
  Transmission Date: 20091009
  Serious: Yes (Other)
  Sender: FDA-Public Use
  Company Number: None

PATIENT
  Age: 48 Year
  Sex: Female
  Weight: 79.8331 kg

DRUGS (1)
  1. ENBREL [Suspect]
     Indication: RHEUMATOID ARTHRITIS
     Dosage: 50 MG QWEEK SQ
     Route: 058
     Dates: start: 20090301, end: 20090429

REACTIONS (9)
  - HYPERSENSITIVITY [None]
  - INJECTION SITE REACTION [None]
  - INJECTION SITE SWELLING [None]
  - LATEX ALLERGY [None]
  - MALAISE [None]
  - PRODUCT LABEL ISSUE [None]
  - PRODUCT QUALITY ISSUE [None]
  - SWELLING [None]
  - SYRINGE ISSUE [None]
